FAERS Safety Report 7464439-2 (Version None)
Quarter: 2011Q2

REPORT INFORMATION
  Report Type: 
  Country: None (occurrence: None)
  Receive Date: 20110509
  Receipt Date: 20110503
  Transmission Date: 20111010
  Serious: No
  Sender: FDA-Public Use
  Company Number: US-PFIZER INC-2011095835

PATIENT

DRUGS (2)
  1. NORVASC [Suspect]
  2. ACTOS [Suspect]

REACTIONS (2)
  - OEDEMA [None]
  - FLUID RETENTION [None]
